FAERS Safety Report 9601125 (Version 2)
Quarter: 2013Q4

REPORT INFORMATION
  Report Type: Spontaneous
  Country: US (occurrence: US)
  Receive Date: 20131004
  Receipt Date: 20131004
  Transmission Date: 20140711
  Serious: No
  Sender: FDA-Public Use
  Company Number: US-AMGEN-USASP2013024314

PATIENT
  Age: 57 Year
  Sex: Female
  Weight: 113.83 kg

DRUGS (3)
  1. ENBREL [Suspect]
     Indication: PSORIATIC ARTHROPATHY
     Dosage: 50 MG, QWK
     Route: 058
     Dates: start: 20130329
  2. AZULFIDINE [Concomitant]
     Dosage: 1000 MG, BID
     Route: 048
     Dates: start: 20120709
  3. PREDNISONE [Concomitant]
     Dosage: 5 MG, QD
     Route: 048

REACTIONS (5)
  - Drug effect decreased [Not Recovered/Not Resolved]
  - Nerve compression [Recovered/Resolved]
  - Paraesthesia [Recovered/Resolved]
  - Injection site pain [Not Recovered/Not Resolved]
  - Injection site reaction [Not Recovered/Not Resolved]
